FAERS Safety Report 6568206-3 (Version None)
Quarter: 2010Q1

REPORT INFORMATION
  Report Type: 
  Country: None (occurrence: None)
  Receive Date: 20100203
  Receipt Date: 20100120
  Transmission Date: 20100710
  Serious: Yes (Other)
  Sender: FDA-Public Use
  Company Number: JP-ROCHE-681140

PATIENT
  Sex: Male
  Weight: 67 kg

DRUGS (21)
  1. MYCOPHENOLATE MOFETIL [Suspect]
     Indication: PROPHYLAXIS AGAINST TRANSPLANT REJECTION
     Route: 048
     Dates: start: 20090310, end: 20091228
  2. MYCOPHENOLATE MOFETIL [Suspect]
     Dosage: DISCONTINUED.
     Route: 048
     Dates: start: 20091229, end: 20100101
  3. NEORAL [Suspect]
     Indication: PROPHYLAXIS AGAINST TRANSPLANT REJECTION
     Dosage: NOTE: 200-450MG(DIVIDED INTO 2 DOSES).
     Route: 048
     Dates: start: 20090311, end: 20091228
  4. MEDROL [Suspect]
     Indication: PROPHYLAXIS AGAINST TRANSPLANT REJECTION
     Dosage: NOTE: 40-4MG.
     Route: 048
     Dates: start: 20080401
  5. MAALOX [Concomitant]
     Route: 048
     Dates: start: 20090310
  6. PERSANTINE [Concomitant]
     Dosage: DRUG: PERSANTIN-L, FORM: SUSTAINED RELEASE CAPSULE
     Route: 048
     Dates: start: 20090310
  7. PARIET [Concomitant]
     Route: 048
     Dates: start: 20090310
  8. LASIX [Concomitant]
     Route: 048
     Dates: start: 20090318
  9. ARGAMATE [Concomitant]
     Route: 048
     Dates: start: 20090323
  10. AMLODIPINE [Concomitant]
     Dosage: DRUG: AMLODIN OD
     Route: 048
     Dates: start: 20090325
  11. DETANTOL R [Concomitant]
     Dosage: NOTE: 3-6MG.
     Route: 048
     Dates: start: 20090326
  12. ADALAT [Concomitant]
     Dosage: FORM: SUSTAINED RELEASE TABLET.
     Route: 048
     Dates: start: 20090327
  13. HUMALOG [Concomitant]
     Dosage: DOSE:24 DF. DAILY; 10 UNITS IN MORNING,8 UNITS IN DAYTIME AND 6 UNITS IN EVENING
     Route: 058
     Dates: start: 20090401
  14. ASPIRIN [Concomitant]
     Dosage: FORM:ENTERIC.
     Route: 048
     Dates: start: 20090408
  15. PURSENNID [Concomitant]
     Dosage: NOTE: 24-36MG.
     Route: 048
     Dates: start: 20090603
  16. BAKTAR [Concomitant]
     Route: 048
     Dates: start: 20090717
  17. ZYLORIC [Concomitant]
     Route: 048
     Dates: start: 20090520
  18. ISODINE [Concomitant]
     Dosage: DOSE FORM: GARGLE, ROUTE: OROPHARINGEAL, NOTE: DOSAGE ADJUSTED.
     Route: 050
     Dates: start: 20090327
  19. TEPRENONE [Concomitant]
     Dosage: DRUG: SELTEPNON(TEPRENONE).
     Route: 048
     Dates: start: 20091208, end: 20091212
  20. SOLETON [Concomitant]
     Route: 048
     Dates: start: 20091208, end: 20091212
  21. EPERISONE HYDROCHLORIDE [Concomitant]
     Dosage: DRUG: MYORELARK(EPERISONE HYDROCHLORIDE.
     Route: 048
     Dates: start: 20091208, end: 20091212

REACTIONS (1)
  - KIDNEY TRANSPLANT REJECTION [None]
